FAERS Safety Report 6133995-9 (Version None)
Quarter: 2009Q1

REPORT INFORMATION
  Report Type: 
  Country: None (occurrence: None)
  Receive Date: 20090217
  Receipt Date: 20080214
  Transmission Date: 20090719
  Serious: No
  Sender: FDA-Public Use
  Company Number: AEUSA200800035

PATIENT
  Sex: Female

DRUGS (1)
  1. PROLASTIN [Suspect]
     Indication: ACCIDENTAL EXPOSURE
     Dosage: OPH
     Route: 047
     Dates: start: 20080214, end: 20080214

REACTIONS (2)
  - ACCIDENTAL EXPOSURE [None]
  - OCULAR HYPERAEMIA [None]
